FAERS Safety Report 9911536 (Version 2)
Quarter: 2014Q1

REPORT INFORMATION
  Report Type: Spontaneous
  Country: US (occurrence: US)
  Receive Date: 20140219
  Receipt Date: 20140321
  Transmission Date: 20141002
  Serious: Yes (Other)
  Sender: FDA-Public Use
  Company Number: PHEH2014US003168

PATIENT
  Sex: Female

DRUGS (4)
  1. DIOVAN HCT [Suspect]
     Dosage: UNK UKN, UNK
  2. DIOVAN HCT [Suspect]
     Dosage: 1 DF, UNK (160 MG VALS/12.5 MG HCTZ)
  3. DIOVAN HCT [Suspect]
     Dosage: 0.5 DF, UKN (160 MG VALS/12.5 MG HCTZ)
  4. CRESTOR [Concomitant]
     Dosage: 20 MG, UNK

REACTIONS (11)
  - Ear neoplasm [Unknown]
  - Meningitis [Unknown]
  - Femoral artery occlusion [Unknown]
  - Bronchopneumonia [Unknown]
  - Anaphylactic shock [Unknown]
  - Cardiac disorder [Unknown]
  - Contusion [Unknown]
  - Arterial disorder [Unknown]
  - Drug hypersensitivity [Unknown]
  - Blood pressure decreased [Recovering/Resolving]
  - Wrong technique in drug usage process [Unknown]
